FAERS Safety Report 20941348 (Version 1)
Quarter: 2022Q2

REPORT INFORMATION
  Report Type: Spontaneous
  Country: JP (occurrence: JP)
  Receive Date: 20220610
  Receipt Date: 20220610
  Transmission Date: 20220720
  Serious: Yes (Other)
  Sender: FDA-Public Use
  Company Number: JP-SUN PHARMACEUTICAL INDUSTRIES LTD-2022R1-339534

PATIENT
  Age: 81 Year
  Sex: Male

DRUGS (1)
  1. LURASIDONE [Suspect]
     Active Substance: LURASIDONE
     Indication: Bipolar disorder
     Dosage: UNK
     Route: 065

REACTIONS (1)
  - Hyperglycaemic hyperosmolar nonketotic syndrome [Unknown]
